FAERS Safety Report 6306645-6 (Version None)
Quarter: 2009Q3

REPORT INFORMATION
  Report Type: 
  Country: None (occurrence: None)
  Receive Date: 20090812
  Receipt Date: 20090803
  Transmission Date: 20100115
  Serious: Yes (Hospitalization)
  Sender: FDA-Public Use
  Company Number: B0587493A

PATIENT
  Sex: Male
  Weight: 12.2 kg

DRUGS (4)
  1. LEXIVA [Suspect]
     Indication: HIV INFECTION
     Dosage: 10.98ML TWICE PER DAY
     Route: 048
     Dates: start: 20080821
  2. RITONAVIR [Suspect]
     Indication: HIV INFECTION
     Dosage: 1.07ML TWICE PER DAY
     Route: 048
     Dates: start: 20080821
  3. ABACAVIR [Concomitant]
  4. 3TC [Concomitant]

REACTIONS (3)
  - FEBRILE CONVULSION [None]
  - LOWER RESPIRATORY TRACT INFECTION [None]
  - PHARYNGITIS [None]
